FAERS Safety Report 9467521 (Version 1)
Quarter: 2013Q3

REPORT INFORMATION
  Report Type: Report from Study
  Country: JP (occurrence: JP)
  Receive Date: 20130821
  Receipt Date: 20130821
  Transmission Date: 20140515
  Serious: Yes (Other)
  Sender: FDA-Public Use
  Company Number: JP-JNJFOC-20130809042

PATIENT
  Age: 70 Year
  Sex: Female
  Weight: 60 kg

DRUGS (19)
  1. SIMPONI [Suspect]
     Indication: RHEUMATOID ARTHRITIS
     Route: 058
     Dates: start: 20130806
  2. SIMPONI [Suspect]
     Indication: RHEUMATOID ARTHRITIS
     Route: 058
     Dates: start: 20130605, end: 20130605
  3. SIMPONI [Suspect]
     Indication: RHEUMATOID ARTHRITIS
     Route: 058
     Dates: start: 20130521, end: 20130521
  4. SIMPONI [Suspect]
     Indication: RHEUMATOID ARTHRITIS
     Route: 058
     Dates: start: 20130409, end: 20130409
  5. SIMPONI [Suspect]
     Indication: RHEUMATOID ARTHRITIS
     Route: 058
     Dates: start: 20130312, end: 20130312
  6. SIMPONI [Suspect]
     Indication: RHEUMATOID ARTHRITIS
     Route: 058
     Dates: start: 20130212, end: 20130212
  7. METHOTREXATE [Concomitant]
     Indication: RHEUMATOID ARTHRITIS
     Route: 065
  8. METHOTREXATE [Concomitant]
     Indication: RHEUMATOID ARTHRITIS
     Route: 065
     Dates: start: 20130108
  9. METHOTREXATE [Concomitant]
     Indication: RHEUMATOID ARTHRITIS
     Route: 065
     Dates: end: 20130108
  10. PREDONINE [Concomitant]
     Indication: RHEUMATOID ARTHRITIS
     Route: 048
  11. LOXONIN [Concomitant]
     Indication: RHEUMATOID ARTHRITIS
     Route: 065
  12. FOLIAMIN [Concomitant]
     Indication: PROPHYLAXIS
     Route: 065
  13. MUCOSTA [Concomitant]
     Route: 065
  14. TAKEPRON [Concomitant]
     Route: 065
  15. ALFAROL [Concomitant]
     Indication: PROPHYLAXIS
     Route: 048
  16. LYRICA [Concomitant]
     Route: 048
  17. MUCODYNE [Concomitant]
     Route: 048
  18. NEXIUM [Concomitant]
     Route: 048
  19. CRAVIT [Concomitant]
     Indication: UPPER RESPIRATORY TRACT INFLAMMATION
     Route: 065

REACTIONS (1)
  - Upper respiratory tract inflammation [Recovered/Resolved]
